FAERS Safety Report 9113831 (Version 1)
Quarter: 2013Q1

REPORT INFORMATION
  Report Type: Report from Study
  Country: FR (occurrence: FR)
  Receive Date: 20130128
  Receipt Date: 20130128
  Transmission Date: 20140127
  Serious: Yes (Other)
  Sender: FDA-Public Use
  Company Number: FR-CELGENEUS-056-21880-12040978

PATIENT
  Sex: 0

DRUGS (10)
  1. REVLIMID [Suspect]
     Indication: B-CELL LYMPHOMA
     Dosage: ESCALATING DOSE
     Route: 048
  2. REVLIMID [Suspect]
     Route: 048
  3. RITUXIMAB [Suspect]
     Indication: B-CELL LYMPHOMA
     Route: 065
  4. CYCLOPHOSPHAMIDE [Suspect]
     Indication: B-CELL LYMPHOMA
     Route: 065
  5. DOXORUBICIN [Suspect]
     Indication: B-CELL LYMPHOMA
     Route: 065
  6. VINCRISTIN [Suspect]
     Indication: B-CELL LYMPHOMA
     Route: 041
  7. PREDNISONE [Suspect]
     Indication: B-CELL LYMPHOMA
     Route: 065
  8. PREDNISONE [Suspect]
     Route: 065
  9. PEGFILGRASTIM [Concomitant]
     Indication: PRODUCT USED FOR UNKNOWN INDICATION
     Route: 065
  10. ASPIRINE [Concomitant]
     Indication: PROPHYLAXIS
     Dosage: 100 MILLIGRAM
     Route: 065

REACTIONS (15)
  - Catheter site haemorrhage [Unknown]
  - Chronic respiratory failure [Unknown]
  - Febrile neutropenia [Unknown]
  - Bacterial sepsis [Unknown]
  - Hypokalaemia [Unknown]
  - Hyponatraemia [Unknown]
  - Hyperglycaemia [Unknown]
  - Hyperuricaemia [Unknown]
  - Non-Hodgkin^s lymphoma [Unknown]
  - Anaemia [Unknown]
  - Thrombocytopenia [Unknown]
  - Neutropenia [Unknown]
  - Neuropathy peripheral [Unknown]
  - Rash [Unknown]
  - Lymphopenia [Unknown]
